FAERS Safety Report 7034457-7 (Version None)
Quarter: 2010Q4

REPORT INFORMATION
  Report Type: 
  Country: None (occurrence: None)
  Receive Date: 20101008
  Receipt Date: 20101004
  Transmission Date: 20110411
  Serious: Yes (Death, Other)
  Sender: FDA-Public Use
  Company Number: PHHY2010US66347

PATIENT
  Sex: Female

DRUGS (1)
  1. CLOZARIL [Suspect]

REACTIONS (4)
  - ASPIRATION [None]
  - DEATH [None]
  - DEMENTIA WITH LEWY BODIES [None]
  - PARKINSON'S DISEASE [None]
